FAERS Safety Report 5229389-0 (Version None)
Quarter: 2007Q1

REPORT INFORMATION
  Report Type: 
  Country: None (occurrence: None)
  Receive Date: 20061201
  Receipt Date: 20060911
  Transmission Date: 20070707
  Serious: No
  Sender: FDA-Public Use
  Company Number: 2006PV021065

PATIENT
  Age: 57 Year
  Sex: Female
  Weight: 100.9253 kg

DRUGS (2)
  1. BYETTA [Suspect]
     Indication: DIABETES MELLITUS NON-INSULIN-DEPENDENT
     Dosage: 5 MCG;BID;SC
     Route: 058
     Dates: start: 20060811, end: 20060907
  2. ACTOS [Concomitant]

REACTIONS (6)
  - FEELING HOT AND COLD [None]
  - INJECTION SITE BRUISING [None]
  - MEDICATION ERROR [None]
  - NAUSEA [None]
  - NERVOUSNESS [None]
  - WEIGHT DECREASED [None]
